FAERS Safety Report 7054018-3 (Version None)
Quarter: 2010Q4

REPORT INFORMATION
  Report Type: 
  Country: None (occurrence: None)
  Receive Date: 20101020
  Receipt Date: 20101012
  Transmission Date: 20110411
  Serious: Yes (Other)
  Sender: FDA-Public Use
  Company Number: GB-TEVA-252038ISR

PATIENT
  Age: 30 Year
  Sex: Female

DRUGS (1)
  1. TRIMETHOPRIM [Suspect]
     Indication: URINARY TRACT INFECTION
     Route: 048
     Dates: start: 20100920

REACTIONS (3)
  - FEELING OF BODY TEMPERATURE CHANGE [None]
  - HYDRONEPHROSIS [None]
  - WHITE BLOOD CELL COUNT INCREASED [None]
